FAERS Safety Report 7392889-1 (Version None)
Quarter: 2011Q2

REPORT INFORMATION
  Report Type: 
  Country: None (occurrence: None)
  Receive Date: 20110404
  Receipt Date: 20110330
  Transmission Date: 20111010
  Serious: Yes (Hospitalization)
  Sender: FDA-Public Use
  Company Number: JP-ROXANE LABORATORIES, INC.-2011-RO-00432RO

PATIENT
  Age: 63 Year
  Sex: Male
  Weight: 54 kg

DRUGS (3)
  1. CYCLOPHOSPHAMIDE [Suspect]
     Indication: GOODPASTURE'S SYNDROME
  2. PREDNISOLONE [Suspect]
     Indication: GOODPASTURE'S SYNDROME
     Route: 048
  3. METHYLPREDNISOLONE [Suspect]
     Indication: GOODPASTURE'S SYNDROME

REACTIONS (1)
  - PNEUMONIA CYTOMEGALOVIRAL [None]
